FAERS Safety Report 24412446 (Version 1)
Quarter: 2024Q4

REPORT INFORMATION
  Report Type: Spontaneous
  Country: US (occurrence: US)
  Receive Date: 20241008
  Receipt Date: 20241008
  Transmission Date: 20250114
  Serious: No
  Sender: ROCHE
  Company Number: US-ROCHE-10000097146

PATIENT

DRUGS (2)
  1. AVASTIN [Suspect]
     Active Substance: BEVACIZUMAB
     Indication: Ovarian cancer
     Dosage: MORE DOSAGE INFORMATION IS EVERY 3 WEEKS
     Route: 042
     Dates: end: 202301
  2. AVASTIN [Suspect]
     Active Substance: BEVACIZUMAB
     Dosage: MORE DOSAGE INFORMATION IS EVERY 3 WEEKS
     Route: 042
     Dates: start: 202311

REACTIONS (4)
  - Diarrhoea [Unknown]
  - Vomiting [Unknown]
  - Steatorrhoea [Unknown]
  - Constipation [Unknown]
